FAERS Safety Report 8453929-1 (Version None)
Quarter: 2012Q2

REPORT INFORMATION
  Report Type: 
  Country: None (occurrence: None)
  Receive Date: 20120620
  Receipt Date: 20120618
  Transmission Date: 20120825
  Serious: Yes (Other)
  Sender: FDA-Public Use
  Company Number: GB-PFIZER INC-2012146993

PATIENT
  Age: 57 Year
  Sex: Female

DRUGS (1)
  1. VARENICLINE TARTRATE [Suspect]
     Indication: SMOKING CESSATION THERAPY
     Dosage: 1 PILL IN THE MORNING AND 1 IN THE EVENING

REACTIONS (7)
  - PAIN [None]
  - MALAISE [None]
  - GAIT DISTURBANCE [None]
  - ABNORMAL DREAMS [None]
  - SKIN EXFOLIATION [None]
  - RASH GENERALISED [None]
  - BLISTER [None]
